FAERS Safety Report 21873114 (Version 1)
Quarter: 2023Q1

REPORT INFORMATION
  Report Type: Spontaneous
  Country: US (occurrence: US)
  Receive Date: 20230117
  Receipt Date: 20230117
  Transmission Date: 20230418
  Serious: No
  Sender: FDA-Public Use
  Company Number: US-Covis Pharma GmbH-2022COV22716

PATIENT
  Age: 66 Year
  Sex: Female

DRUGS (1)
  1. ALVESCO [Suspect]
     Active Substance: CICLESONIDE
     Indication: Multiple allergies
     Dosage: 2 PUFFS TWICE A DAY

REACTIONS (4)
  - Feeling jittery [Unknown]
  - Dyspnoea [Unknown]
  - Off label use [Unknown]
  - Incorrect dose administered [Unknown]
